FAERS Safety Report 8863948 (Version 1)
Quarter: 2012Q4

REPORT INFORMATION
  Report Type: 
  Country: US (occurrence: US)
  Receive Date: 20121024
  Receipt Date: 20121024
  Transmission Date: 20130627
  Serious: No
  Sender: FDA-Public Use
  Company Number: US-AMGEN-USASP2011064821

PATIENT
  Age: 44 Year
  Sex: Female

DRUGS (4)
  1. ENBREL [Suspect]
     Indication: RHEUMATOID ARTHRITIS
     Dosage: 50 mg, qwk
     Dates: start: 201109
  2. METHOTREXATE [Concomitant]
     Dosage: UNK
  3. ERYTHROMYCIN [Concomitant]
     Dosage: UNK
  4. MUCINEX [Concomitant]
     Dosage: UNK

REACTIONS (4)
  - Dysphonia [Not Recovered/Not Resolved]
  - Eye irritation [Not Recovered/Not Resolved]
  - Pneumonia [Not Recovered/Not Resolved]
  - Injection site bruising [Recovered/Resolved]
